FAERS Safety Report 9435639 (Version 1)
Quarter: 2013Q3

REPORT INFORMATION
  Report Type: Spontaneous
  Country: US (occurrence: US)
  Receive Date: 20130730
  Receipt Date: 20130730
  Transmission Date: 20140515
  Serious: Yes (Other)
  Sender: FDA-Public Use
  Company Number: AUR-APL-2013-06320

PATIENT
  Sex: Male

DRUGS (2)
  1. METFORMIN [Suspect]
     Indication: DIABETES MELLITUS
  2. GLIPIZIDE [Suspect]
     Indication: DIABETES MELLITUS

REACTIONS (1)
  - Diabetes mellitus inadequate control [None]
